FAERS Safety Report 15929241 (Version 1)
Quarter: 2019Q1

REPORT INFORMATION
  Report Type: Spontaneous
  Country: DE (occurrence: DE)
  Receive Date: 20190206
  Receipt Date: 20190206
  Transmission Date: 20190417
  Serious: Yes (Other)
  Sender: FDA-Public Use
  Company Number: DE-ASTRAZENECA-2019SE19143

PATIENT
  Age: 64 Year
  Sex: Female

DRUGS (5)
  1. OLAPARIB. [Suspect]
     Active Substance: OLAPARIB
     Route: 048
  2. PALBOCICLIB [Suspect]
     Active Substance: PALBOCICLIB
     Route: 048
  3. EXEMESTANE. [Concomitant]
     Active Substance: EXEMESTANE
  4. FASLODEX [Suspect]
     Active Substance: FULVESTRANT
     Route: 030
  5. OLAPARIB. [Suspect]
     Active Substance: OLAPARIB
     Route: 048
     Dates: start: 20181101

REACTIONS (10)
  - Off label use [Unknown]
  - Pleural effusion [Unknown]
  - Metastases to pleura [Unknown]
  - Malignant neoplasm progression [Unknown]
  - Osteonecrosis of jaw [Unknown]
  - Cardiac failure [Unknown]
  - Transaminases increased [Unknown]
  - Metastases to skin [Unknown]
  - Pericardial effusion [Unknown]
  - Metastases to chest wall [Unknown]

NARRATIVE: CASE EVENT DATE: 201605
